FAERS Safety Report 8386805-3 (Version None)
Quarter: 2012Q2

REPORT INFORMATION
  Report Type: 
  Country: None (occurrence: None)
  Receive Date: 20120525
  Receipt Date: 20120516
  Transmission Date: 20120825
  Serious: Yes (Death)
  Sender: FDA-Public Use
  Company Number: RO-BRISTOL-MYERS SQUIBB COMPANY-16598294

PATIENT
  Age: 37 Year
  Sex: Female

DRUGS (1)
  1. YERVOY [Suspect]
     Dosage: MAY 11TH, 2012: 2 INF
     Route: 042
     Dates: start: 20120420

REACTIONS (2)
  - INTRACRANIAL PRESSURE INCREASED [None]
  - CARDIO-RESPIRATORY ARREST [None]
